FAERS Safety Report 18851565 (Version 1)
Quarter: 2021Q1

REPORT INFORMATION
  Report Type: Spontaneous
  Country: US (occurrence: US)
  Receive Date: 20210204
  Receipt Date: 20210204
  Transmission Date: 20210420
  Serious: Yes (Hospitalization)
  Sender: FDA-Public Use
  Company Number: None

PATIENT
  Age: 69 Year
  Sex: Female
  Weight: 85.05 kg

DRUGS (1)
  1. ZOLEDRONIC ACID [Suspect]
     Active Substance: ZOLEDRONIC ACID
     Indication: OSTEOPOROSIS
     Dosage: ?          OTHER FREQUENCY:ONCE YEARLY;?
     Route: 042
     Dates: start: 20200909, end: 20200909

REACTIONS (4)
  - Pyrexia [None]
  - Bone pain [None]
  - Asthenia [None]
  - Chills [None]

NARRATIVE: CASE EVENT DATE: 20200911
